FAERS Safety Report 5941240-X (Version None)
Quarter: 2008Q4

REPORT INFORMATION
  Report Type: 
  Country: None (occurrence: None)
  Receive Date: 20081104
  Receipt Date: 20081104
  Transmission Date: 20090506
  Serious: Yes (Other)
  Sender: FDA-Public Use
  Company Number: None

PATIENT
  Sex: Female
  Weight: 91.173 kg

DRUGS (4)
  1. SERTRALINE [Suspect]
     Indication: ANXIETY
     Dosage: 100MG ONCE QD MOUTH
     Route: 048
     Dates: start: 20080601, end: 20080701
  2. SERTRALINE [Suspect]
     Indication: DEPRESSION
     Dosage: 100MG ONCE QD MOUTH
     Route: 048
     Dates: start: 20080601, end: 20080701
  3. SERTRALINE [Suspect]
     Indication: ANXIETY
     Dosage: 100MG ONCE QD MOUTH
     Route: 048
     Dates: start: 20081024, end: 20081030
  4. SERTRALINE [Suspect]
     Indication: DEPRESSION
     Dosage: 100MG ONCE QD MOUTH
     Route: 048
     Dates: start: 20081024, end: 20081030

REACTIONS (4)
  - CONDITION AGGRAVATED [None]
  - DEPRESSION [None]
  - DRUG EFFECT DECREASED [None]
  - THERAPEUTIC RESPONSE UNEXPECTED WITH DRUG SUBSTITUTION [None]
